FAERS Safety Report 8350521-4 (Version None)
Quarter: 2012Q2

REPORT INFORMATION
  Report Type: 
  Country: None (occurrence: None)
  Receive Date: 20120510
  Receipt Date: 20120502
  Transmission Date: 20120825
  Serious: Yes (Hospitalization)
  Sender: FDA-Public Use
  Company Number: JP-ALEXION PHARMACEUTICALS INC.-A201100127

PATIENT
  Age: 28 Year
  Sex: Male

DRUGS (12)
  1. ASPIRIN [Concomitant]
     Dosage: 100 MG, QD
     Dates: start: 20040913
  2. PREDNISOLONE [Concomitant]
     Dosage: 10 MG, QD
     Dates: start: 20110131
  3. PLATELETS [Concomitant]
     Dosage: UNK
     Dates: start: 20101106, end: 20101106
  4. SELBEX [Concomitant]
     Dosage: 100 MG, QD
     Dates: start: 20060511
  5. RED BLOOD CELLS [Concomitant]
     Dosage: UNK
     Dates: start: 20101106, end: 20101106
  6. PREDNISOLONE [Concomitant]
     Indication: PAROXYSMAL NOCTURNAL HAEMOGLOBINURIA
     Dosage: 20 MG, QD
     Dates: start: 20100525, end: 20101111
  7. PREDNISOLONE [Concomitant]
     Dosage: 15 MG, QD
     Dates: start: 20101112
  8. RABEPRAZOLE SODIUM [Concomitant]
     Dosage: 10 MG, QD
     Dates: start: 20060511
  9. SOLIRIS [Suspect]
     Indication: PAROXYSMAL NOCTURNAL HAEMOGLOBINURIA
     Dosage: 600 MG, QW
     Route: 042
     Dates: start: 20101105, end: 20101101
  10. SOLIRIS [Suspect]
     Dosage: 900 MG, Q2W
     Route: 042
     Dates: start: 20101202, end: 20110506
  11. COTRIM [Concomitant]
     Dosage: UNK
     Dates: start: 20061121
  12. SOLU-MEDROL [Concomitant]
     Dosage: 125 MG, QD
     Dates: start: 20051129, end: 20051130

REACTIONS (1)
  - GINGIVITIS [None]
